FAERS Safety Report 11788548 (Version 1)
Quarter: 2015Q4

REPORT INFORMATION
  Report Type: Spontaneous
  Country: US (occurrence: None)
  Receive Date: 20151127
  Receipt Date: 20151127
  Transmission Date: 20160305
  Serious: Yes (Hospitalization)
  Sender: FDA-Public Use
  Company Number: 54973 AE#1654

PATIENT
  Age: 1 Year
  Sex: Male

DRUGS (1)
  1. BABY TEETHING [Suspect]
     Active Substance: ATROPA BELLADONNA\CALCIUM PHOSPHATE\CHAMOMILE\COFFEA ARABICA FRUIT
     Indication: TEETHING
     Route: 048

REACTIONS (3)
  - Unresponsive to stimuli [None]
  - Seizure [None]
  - Pyrexia [None]

NARRATIVE: CASE EVENT DATE: 20150504
